FAERS Safety Report 6945409-7 (Version None)
Quarter: 2010Q3

REPORT INFORMATION
  Report Type: 
  Country: None (occurrence: None)
  Receive Date: 20100827
  Receipt Date: 20100820
  Transmission Date: 20110219
  Serious: Yes (Hospitalization)
  Sender: FDA-Public Use
  Company Number: ES-ROCHE-717195

PATIENT
  Sex: Male
  Weight: 56.3 kg

DRUGS (6)
  1. TOCILIZUMAB [Suspect]
     Indication: RHEUMATOID ARTHRITIS
     Dosage: FORM: IV INFUSION. LAST DOSE PRIOR TO SAE: 24 JUNE 2010. THERAPY PERMANENTLY DISCONTINUED.
     Route: 042
     Dates: start: 20091015, end: 20100722
  2. METHOTREXATE [Suspect]
     Indication: RHEUMATOID ARTHRITIS
     Dosage: LAST DOSE PRIOR TO SAE: 13 JULY 2010. THERAPY: PERMANENTLY DISCONTINUED.
     Route: 048
     Dates: start: 20091015, end: 20100722
  3. INDOMETHACIN [Concomitant]
     Dates: start: 19960101
  4. FOLIC ACID [Concomitant]
     Dosage: TOTAL DAILY DOSE: 5 CAP
     Dates: start: 19940101
  5. OMEPRAZOLE [Concomitant]
     Dosage: TOTAL DAILY DOSE: 20 CAP.
     Dates: start: 19980101
  6. PREDNISONE [Concomitant]
     Dates: start: 19990101

REACTIONS (3)
  - AORTIC STENOSIS [None]
  - ISCHAEMIC CARDIOMYOPATHY [None]
  - PULMONARY OEDEMA [None]
